FAERS Safety Report 18131197 (Version 2)
Quarter: 2020Q4

REPORT INFORMATION
  Report Type: Spontaneous
  Country: FR (occurrence: FR)
  Receive Date: 20200810
  Receipt Date: 20201023
  Transmission Date: 20210113
  Serious: Yes (Other)
  Sender: FDA-Public Use
  Company Number: FR-NOVOPROD-744744

PATIENT
  Age: 16 Year
  Sex: Male
  Weight: 69.4 kg

DRUGS (2)
  1. NORDITROPIN [Suspect]
     Active Substance: SOMATROPIN
     Dosage: 2.6 MG, QD
     Route: 058
     Dates: start: 20150630, end: 20200701
  2. NORDITROPIN [Suspect]
     Active Substance: SOMATROPIN
     Indication: GROWTH HORMONE DEFICIENCY
     Dosage: UNK
     Route: 058
     Dates: start: 20140430

REACTIONS (2)
  - Sinus polyp [Unknown]
  - Juvenile angiofibroma [Unknown]

NARRATIVE: CASE EVENT DATE: 20200501
